FAERS Safety Report 7077597-9 (Version None)
Quarter: 2010Q4

REPORT INFORMATION
  Report Type: 
  Country: None (occurrence: None)
  Receive Date: 20101101
  Receipt Date: 20101027
  Transmission Date: 20110411
  Serious: Yes (Other)
  Sender: FDA-Public Use
  Company Number: US-BAYER-201022648BCC

PATIENT
  Sex: Female

DRUGS (1)
  1. NEO-SYNEPHRINE EXTRA STRENGTH [Suspect]
     Route: 045
     Dates: start: 20090101

REACTIONS (1)
  - DRUG ABUSE [None]
